FAERS Safety Report 4811476-X (Version None)
Quarter: 2005Q4

REPORT INFORMATION
  Report Type: 
  Country: None (occurrence: None)
  Receive Date: 20051025
  Receipt Date: 20051011
  Transmission Date: 20060501
  Serious: Yes (Hospitalization)
  Sender: FDA-Public Use
  Company Number: FRWYE043911OCT05

PATIENT
  Age: 59 Year
  Sex: Male

DRUGS (4)
  1. BISOPROLOL FUMARATE [Suspect]
     Indication: HYPERTENSION
     Dosage: 10 MG 1X PER 1 DAY
     Route: 048
     Dates: end: 20050801
  2. CELEBREX [Suspect]
     Dosage: 100 MG 1X PER 1 DAY
     Route: 048
     Dates: start: 20030315, end: 20050801
  3. SULFASALAZINE [Suspect]
     Indication: ANKYLOSING SPONDYLITIS
     Dosage: 1 G 2X PER 1 DAY
     Route: 048
  4. LERCANIDIPINE [Suspect]
     Indication: HYPERTENSION
     Dosage: 10 MG 1X PER 1 DAY
     Route: 048
     Dates: end: 20050801

REACTIONS (2)
  - ACUTE MYOCARDIAL INFARCTION [None]
  - NECK PAIN [None]
